FAERS Safety Report 15289547 (Version 3)
Quarter: 2018Q4

REPORT INFORMATION
  Report Type: Report from Study
  Country: IT (occurrence: IT)
  Receive Date: 20180817
  Receipt Date: 20181101
  Transmission Date: 20190204
  Serious: Yes (Life-Threatening, Hospitalization)
  Sender: FDA-Public Use
  Company Number: IT-LPDUSPRD-20181457

PATIENT
  Age: 65 Year
  Sex: Male
  Weight: 88 kg

DRUGS (9)
  1. FERINJECT [Suspect]
     Active Substance: FERRIC CARBOXYMALTOSE
     Dosage: 10 ML
     Route: 040
     Dates: start: 20180423, end: 20180423
  2. SALMETEROLO FLUTICASONE [Concomitant]
     Dosage: 1 PUFF ( 2 IN 1 D)
     Route: 055
  3. CANRENONE [Concomitant]
     Active Substance: CANRENONE
     Dosage: 50 MG (50 MG, 1 IN 1 D)
     Route: 048
     Dates: start: 2018
  4. PANTOPRAZOLE [Concomitant]
     Active Substance: PANTOPRAZOLE
     Dosage: 20 MG (20 MG, 1 IN 1 D)
     Route: 048
  5. LASIX [Concomitant]
     Active Substance: FUROSEMIDE
     Dosage: 250 MG (250 MG, 1 IN 1 D)
     Route: 042
     Dates: start: 20180418, end: 20180419
  6. WARFARIN [Concomitant]
     Active Substance: WARFARIN
     Dosage: 1 IN 1 D
     Route: 048
  7. AMIODARONE [Concomitant]
     Active Substance: AMIODARONE
     Dosage: 200MG (200MG, 1 IN 1 DAY)
     Route: 048
     Dates: start: 20180726, end: 20180807
  8. ACETYLSALICYLIC ACID [Concomitant]
     Active Substance: ASPIRIN
     Dosage: 100 MG (100 MG, 1 IN 1 D)
     Route: 048
  9. BISOPROLOL [Concomitant]
     Active Substance: BISOPROLOL
     Dosage: 7.5 MG (3.75 MG, 2 IN 1 D)
     Route: 048
     Dates: start: 2017

REACTIONS (1)
  - Ventricular arrhythmia [Unknown]

NARRATIVE: CASE EVENT DATE: 20180802
